FAERS Safety Report 9010078 (Version 3)
Quarter: 2013Q1

REPORT INFORMATION
  Report Type: Spontaneous
  Country: US (occurrence: US)
  Receive Date: 20130110
  Receipt Date: 20130329
  Transmission Date: 20140127
  Serious: Yes (Death, Hospitalization, Other)
  Sender: FDA-Public Use
  Company Number: US-GENZYME-FABR-1002949

PATIENT
  Age: 62 None
  Sex: Male
  Weight: 45.35 kg

DRUGS (2)
  1. FABRAZYME [Suspect]
     Indication: FABRY^S DISEASE
     Dosage: 90 MG/KG, Q2W
     Route: 042
     Dates: start: 200401, end: 201002
  2. MORPHINE [Concomitant]
     Indication: PRODUCT USED FOR UNKNOWN INDICATION
     Dosage: UNK
     Route: 065
     Dates: start: 20121224

REACTIONS (7)
  - Fall [Unknown]
  - Renal failure [Fatal]
  - Cerebrovascular accident [Fatal]
  - Transient ischaemic attack [Fatal]
  - Transplant failure [Fatal]
  - Hip fracture [Recovered/Resolved]
  - Decreased appetite [Fatal]
